FAERS Safety Report 8923880 (Version 2)
Quarter: 2012Q4

REPORT INFORMATION
  Report Type: 
  Country: US (occurrence: US)
  Receive Date: 20121126
  Receipt Date: 20121220
  Transmission Date: 20130627
  Serious: Yes (Other)
  Sender: FDA-Public Use
  Company Number: US-PFIZER INC-2012293112

PATIENT
  Age: 85 Year
  Sex: Female
  Weight: 68.03 kg

DRUGS (4)
  1. LYRICA [Suspect]
     Indication: FIBROMYALGIA
     Dosage: 50 mg, 2x/day
     Dates: start: 2012, end: 2012
  2. LEVOTHYROXINE [Concomitant]
     Indication: THYROID DISORDER
     Dosage: 75 ug, daily
  3. DICLOFENAC [Concomitant]
     Indication: PAIN
     Dosage: 75 mg, as needed
  4. VICODIN [Concomitant]
     Indication: PAIN
     Dosage: UNK

REACTIONS (5)
  - Nervous system disorder [Unknown]
  - Memory impairment [Unknown]
  - Pain [Unknown]
  - Drug ineffective [Unknown]
  - Therapeutic response unexpected [Unknown]
